FAERS Safety Report 13469245 (Version 5)
Quarter: 2017Q3

REPORT INFORMATION
  Report Type: Spontaneous
  Country: JP (occurrence: JP)
  Receive Date: 20170421
  Receipt Date: 20170905
  Transmission Date: 20171127
  Serious: Yes (Hospitalization, Other)
  Sender: FDA-Public Use
  Company Number: JP-GILEAD-2017-0267955

PATIENT
  Age: 76 Year
  Sex: Male
  Weight: 47.6 kg

DRUGS (8)
  1. SOVALDI [Suspect]
     Active Substance: SOFOSBUVIR
     Indication: HEPATITIS C
     Dosage: 400 MG, UNK
     Route: 048
     Dates: start: 20170411, end: 20170412
  2. AMIODARONE [Suspect]
     Active Substance: AMIODARONE
     Indication: ATRIAL FIBRILLATION
     Dosage: 200 MG, UNK
     Route: 065
     Dates: start: 201401, end: 20170412
  3. REBETOL [Concomitant]
     Active Substance: RIBAVIRIN
     Indication: HEPATITIS C
     Dosage: 600 MG, UNK
     Dates: start: 20170411, end: 20170412
  4. UNISIA [Concomitant]
     Active Substance: AMLODIPINE BESYLATE\CANDESARTAN CILEXETIL
     Dosage: 1 DF, UNK
  5. LENDORMIN [Concomitant]
     Active Substance: BROTIZOLAM
     Dosage: 2 DF, UNK
  6. PRAZAXA [Concomitant]
     Active Substance: DABIGATRAN ETEXILATE MESYLATE
     Dosage: 2 DF, UNK
  7. BETANIS [Concomitant]
     Active Substance: MIRABEGRON
     Dosage: 50 MG, UNK
  8. URSO [Concomitant]
     Active Substance: URSODIOL
     Dosage: 100 MG, TID

REACTIONS (2)
  - Sinus bradycardia [Recovered/Resolved]
  - Drug-induced liver injury [Recovered/Resolved]

NARRATIVE: CASE EVENT DATE: 20170412
